FAERS Safety Report 7302135-2 (Version None)
Quarter: 2011Q1

REPORT INFORMATION
  Report Type: 
  Country: None (occurrence: None)
  Receive Date: 20110207
  Receipt Date: 20110201
  Transmission Date: 20110831
  Serious: Yes (Hospitalization)
  Sender: FDA-Public Use
  Company Number: DSA_44862_2011

PATIENT
  Sex: Female

DRUGS (1)
  1. XENAZINE 12.5 MG (NOT SPECIFIED) [Suspect]
     Indication: DYSKINESIA
     Dosage: (12.5 MG BID ORAL)
     Route: 048
     Dates: start: 20101220

REACTIONS (1)
  - MALAISE [None]
